FAERS Safety Report 10646033 (Version 1)
Quarter: 2014Q4

REPORT INFORMATION
  Report Type: Report from Study
  Country: US (occurrence: US)
  Receive Date: 20141211
  Receipt Date: 20141211
  Transmission Date: 20150529
  Serious: Yes (Hospitalization)
  Sender: FDA-Public Use
  Company Number: US-009507513-1412USA004113

PATIENT
  Age: 49 Year
  Sex: Male

DRUGS (1)
  1. MK-3475 [Suspect]
     Active Substance: PEMBROLIZUMAB
     Indication: MALIGNANT MELANOMA
     Dosage: DOSE 5
     Dates: start: 201203, end: 201206

REACTIONS (2)
  - Renal failure [Recovering/Resolving]
  - Muscle injury [Recovering/Resolving]

NARRATIVE: CASE EVENT DATE: 201206
